FAERS Safety Report 8476751-9 (Version None)
Quarter: 2012Q2

REPORT INFORMATION
  Report Type: 
  Country: None (occurrence: None)
  Receive Date: 20120628
  Receipt Date: 20120622
  Transmission Date: 20120825
  Serious: Yes (Other)
  Sender: FDA-Public Use
  Company Number: JP-MERCK-1206USA04728

PATIENT
  Age: 55 Year
  Sex: Female

DRUGS (15)
  1. CYCLOPHOSPHAMIDE [Concomitant]
     Route: 065
     Dates: start: 20120326, end: 20120326
  2. EMEND [Suspect]
     Route: 041
     Dates: start: 20120326, end: 20120326
  3. ALOXI [Concomitant]
     Route: 065
     Dates: start: 20120305, end: 20120305
  4. DECADRON [Concomitant]
     Route: 065
     Dates: start: 20120305, end: 20120305
  5. EPIRUBICIN HYDROCHLORIDE [Concomitant]
     Indication: BREAST CANCER
     Route: 065
     Dates: start: 20120305, end: 20120305
  6. DECADRON [Concomitant]
     Route: 065
     Dates: start: 20120416, end: 20120416
  7. EPIRUBICIN HYDROCHLORIDE [Concomitant]
     Route: 065
     Dates: start: 20120326, end: 20120326
  8. EMEND [Suspect]
     Indication: PROPHYLAXIS OF NAUSEA AND VOMITING
     Route: 041
     Dates: start: 20120305, end: 20120305
  9. EMEND [Suspect]
     Route: 041
     Dates: start: 20120416, end: 20120416
  10. ALOXI [Concomitant]
     Route: 065
     Dates: start: 20120416, end: 20120416
  11. ALOXI [Concomitant]
     Route: 065
     Dates: start: 20120326, end: 20120326
  12. CYCLOPHOSPHAMIDE [Concomitant]
     Indication: BREAST CANCER
     Route: 065
     Dates: start: 20120305, end: 20120305
  13. EPIRUBICIN HYDROCHLORIDE [Concomitant]
     Route: 065
     Dates: start: 20120416, end: 20120416
  14. DECADRON [Concomitant]
     Route: 065
     Dates: start: 20120326, end: 20120326
  15. CYCLOPHOSPHAMIDE [Concomitant]
     Route: 065
     Dates: start: 20120416, end: 20120416

REACTIONS (3)
  - INJECTION SITE INDURATION [None]
  - INJECTION SITE PAIN [None]
  - INJECTION SITE PHLEBITIS [None]
